FAERS Safety Report 10008621 (Version 1)
Quarter: 2014Q1

REPORT INFORMATION
  Report Type: Spontaneous
  Country: US (occurrence: US)
  Receive Date: 20140312
  Receipt Date: 20140312
  Transmission Date: 20141002
  Serious: No
  Sender: FDA-Public Use
  Company Number: US-INCYTE CORPORATION-2012IN000309

PATIENT
  Sex: Female

DRUGS (11)
  1. JAKAFI [Suspect]
     Indication: MYELOFIBROSIS
     Dosage: 10 MG, BID
     Route: 048
  2. TOPROL [Concomitant]
     Dosage: UNK
  3. DIOVAN [Concomitant]
     Dosage: UNK
  4. CYMBALTA [Concomitant]
     Dosage: UNK
  5. BUPROPION [Concomitant]
     Dosage: UNK
  6. SYNTHROID [Concomitant]
     Dosage: UNK
  7. FUROSEMIDE [Concomitant]
     Dosage: UNK
  8. PROTONIX [Concomitant]
     Dosage: UNK
  9. GABAPENTIN [Concomitant]
     Dosage: UNK
  10. ULORIC [Concomitant]
     Dosage: UNK
  11. NAPROXEN [Concomitant]
     Dosage: UNK

REACTIONS (1)
  - Abnormal dreams [Unknown]
